FAERS Safety Report 4503496-X (Version None)
Quarter: 2004Q4

REPORT INFORMATION
  Report Type: 
  Country: None (occurrence: None)
  Receive Date: 20041112
  Receipt Date: 20041101
  Transmission Date: 20050328
  Serious: No
  Sender: FDA-Public Use
  Company Number: 2003153984FR

PATIENT
  Sex: Female
  Weight: 3.3 kg

DRUGS (4)
  1. MEDROL [Suspect]
     Dosage: 4 MG, BID, OTHER
     Route: 050
     Dates: start: 19990506, end: 19990513
  2. LECTIL (BETAHISTINE HYDROCHLORIDE) [Suspect]
     Dosage: 1 DF, OTHER
     Route: 050
     Dates: end: 19990528
  3. PRAXILENE (NAFTIDROFURYL OXALATE) [Suspect]
     Dosage: 100 MG, TID, OTHER
     Route: 050
     Dates: start: 19990506, end: 19990521
  4. TANGANIL (ETHANOLAMINE ACETYLLEUCINATE) [Suspect]
     Dosage: 500 MG, OTHER
     Route: 050
     Dates: end: 19990528

REACTIONS (4)
  - DRUG EXPOSURE DURING PREGNANCY [None]
  - FOETAL DISORDER [None]
  - PYELOCALIECTASIS [None]
  - URETERIC DILATATION [None]
